FAERS Safety Report 6347613-8 (Version None)
Quarter: 2009Q3

REPORT INFORMATION
  Report Type: 
  Country: None (occurrence: None)
  Receive Date: 20090910
  Receipt Date: 20090811
  Transmission Date: 20100115
  Serious: No
  Sender: FDA-Public Use
  Company Number: US-BAYER-200913374BCC

PATIENT
  Age: 85 Year
  Sex: Female
  Weight: 71 kg

DRUGS (4)
  1. ALEVE (CAPLET) [Suspect]
     Indication: TOOTH EXTRACTION
     Dosage: TOTAL DAILY DOSE: 1100 MG  UNIT DOSE: 220 MG
     Route: 048
  2. ALEVE (CAPLET) [Suspect]
     Dosage: TOTAL DAILY DOSE: 220 MG  UNIT DOSE: 220 MG
     Route: 048
  3. PHOSOMAX [Concomitant]
     Route: 065
  4. SYNTHROID [Concomitant]
     Route: 065

REACTIONS (2)
  - DIZZINESS [None]
  - HEAD DISCOMFORT [None]
